FAERS Safety Report 4709505-7 (Version None)
Quarter: 2005Q3

REPORT INFORMATION
  Report Type: 
  Country: None (occurrence: None)
  Receive Date: 20050706
  Receipt Date: 20050706
  Transmission Date: 20060218
  Serious: Yes (Hospitalization)
  Sender: FDA-Public Use
  Company Number: None

PATIENT
  Age: 71 Year
  Sex: Female
  Weight: 99.7913 kg

DRUGS (5)
  1. DAPTOMYCIN    500 MG    CUBIST [Suspect]
     Indication: LEG AMPUTATION
     Dosage: 6 MG/KG    DAILY   INTRAVENOU
     Route: 042
     Dates: start: 20050330, end: 20050407
  2. DAPTOMYCIN    500 MG    CUBIST [Suspect]
     Indication: POSTOPERATIVE INFECTION
     Dosage: 6 MG/KG    DAILY   INTRAVENOU
     Route: 042
     Dates: start: 20050330, end: 20050407
  3. DAPTOMYCIN    500 MG    CUBIST [Suspect]
     Indication: STAPHYLOCOCCAL INFECTION
     Dosage: 6 MG/KG    DAILY   INTRAVENOU
     Route: 042
     Dates: start: 20050330, end: 20050407
  4. ATORVASTATIN CALCIUM [Concomitant]
  5. COLCHICINE [Concomitant]

REACTIONS (1)
  - RHABDOMYOLYSIS [None]
